FAERS Safety Report 13346554 (Version 1)
Quarter: 2017Q1

REPORT INFORMATION
  Report Type: Spontaneous
  Country: FR (occurrence: FR)
  Receive Date: 20170317
  Receipt Date: 20170317
  Transmission Date: 20170428
  Serious: Yes (Hospitalization, Other)
  Sender: FDA-Public Use
  Company Number: FR-PFIZER INC-2017107751

PATIENT
  Age: 69 Year
  Sex: Male

DRUGS (13)
  1. VALSARTAN AND HYDROCHLOROTHIAZIDE [Concomitant]
     Active Substance: HYDROCHLOROTHIAZIDE\VALSARTAN
  2. LERCANIDIPINE HYDROCHLORIDE [Concomitant]
     Active Substance: LERCANIDIPINE HYDROCHLORIDE
     Dosage: UNK
  3. METFORMIN [Concomitant]
     Active Substance: METFORMIN HYDROCHLORIDE
     Dosage: UNK
  4. GALVUS [Concomitant]
     Active Substance: VILDAGLIPTIN
     Dosage: UNK MG, UNK
  5. NEBIVOLOL. [Concomitant]
     Active Substance: NEBIVOLOL
     Dosage: UNK
  6. LEXOMIL ROCHE [Concomitant]
     Active Substance: BROMAZEPAM
  7. CARBAMAZEPIN [Concomitant]
     Active Substance: CARBAMAZEPINE
  8. SPIRONOLACTONE. [Concomitant]
     Active Substance: SPIRONOLACTONE
     Dosage: UNK
  9. LASILIX /00032601/ [Concomitant]
     Active Substance: FUROSEMIDE
     Dosage: UNK
     Route: 048
  10. INEXIUM /01479302/ [Concomitant]
     Active Substance: ESOMEPRAZOLE MAGNESIUM
  11. TAHOR [Suspect]
     Active Substance: ATORVASTATIN CALCIUM
     Indication: DYSLIPIDAEMIA
     Dosage: 40 MG, 1X/DAY
     Route: 048
     Dates: end: 20170217
  12. KARDEGIC [Suspect]
     Active Substance: ASPIRIN LYSINE
     Indication: AORTIC ANEURYSM
     Dosage: 160 MG, 1X/DAY
     Route: 048
     Dates: end: 20170213
  13. EUPRESSYL /00631801/ [Concomitant]
     Active Substance: URAPIDIL
     Dosage: 30 MG, UNK

REACTIONS (5)
  - Hypertension [Unknown]
  - Cerebral haematoma [Recovering/Resolving]
  - Intracranial mass [Recovering/Resolving]
  - Respiratory rate decreased [Unknown]
  - Brain herniation [Unknown]

NARRATIVE: CASE EVENT DATE: 20170213
